FAERS Safety Report 5889142-1 (Version None)
Quarter: 2008Q3

REPORT INFORMATION
  Report Type: 
  Country: None (occurrence: None)
  Receive Date: 20080919
  Receipt Date: 20080915
  Transmission Date: 20090109
  Serious: Yes (Other)
  Sender: FDA-Public Use
  Company Number: US-BAYER-200830709NA

PATIENT
  Sex: Female

DRUGS (1)
  1. AVELOX [Suspect]
     Indication: SINUSITIS

REACTIONS (4)
  - CRYING [None]
  - DEPRESSED MOOD [None]
  - HALLUCINATION, VISUAL [None]
  - SUICIDAL IDEATION [None]
